FAERS Safety Report 13761076 (Version 1)
Quarter: 2017Q3

REPORT INFORMATION
  Report Type: Report from Study
  Country: BR (occurrence: BR)
  Receive Date: 20170717
  Receipt Date: 20170717
  Transmission Date: 20171127
  Serious: Yes (Other)
  Sender: FDA-Public Use
  Company Number: PHHY2017BR092276

PATIENT
  Sex: Female
  Weight: 86.3 kg

DRUGS (2)
  1. COSENTYX [Suspect]
     Active Substance: SECUKINUMAB
     Dosage: 300 MG (150 MG TWO PENS), QMO
     Route: 058
     Dates: start: 20170523
  2. COSENTYX [Suspect]
     Active Substance: SECUKINUMAB
     Indication: PSORIATIC ARTHROPATHY
     Dosage: 300 MG (150 MG TWO PENS), QMO
     Route: 058

REACTIONS (4)
  - Hypersensitivity [Unknown]
  - Oropharyngeal pain [Unknown]
  - Pneumonia [Unknown]
  - Influenza [Not Recovered/Not Resolved]
